FAERS Safety Report 5130128-2 (Version None)
Quarter: 2006Q4

REPORT INFORMATION
  Report Type: 
  Country: None (occurrence: None)
  Receive Date: 20061013
  Receipt Date: 20061009
  Transmission Date: 20070319
  Serious: Yes (Death)
  Sender: FDA-Public Use
  Company Number: S06-IRL-02685-01

PATIENT
  Age: 63 Year
  Sex: Male
  Weight: 78 kg

DRUGS (1)
  1. LEXAPRO [Suspect]
     Indication: DEPRESSED MOOD
     Dosage: 1 TABLET QD PO
     Dates: start: 20060203, end: 20060208

REACTIONS (14)
  - ARTERIOSCLEROSIS CORONARY ARTERY [None]
  - COMPLETED SUICIDE [None]
  - EAR HAEMORRHAGE [None]
  - ERYTHEMA [None]
  - HEPATIC STEATOSIS [None]
  - HEPATOMEGALY [None]
  - INJURY ASPHYXIATION [None]
  - MEDIASTINAL HAEMORRHAGE [None]
  - MIDDLE EAR DISORDER [None]
  - PETECHIAE [None]
  - PULMONARY CONGESTION [None]
  - PULMONARY OEDEMA [None]
  - RENAL HAEMORRHAGE [None]
  - SELF-MEDICATION [None]
